FAERS Safety Report 8386400-6 (Version None)
Quarter: 2012Q2

REPORT INFORMATION
  Report Type: 
  Country: None (occurrence: None)
  Receive Date: 20120523
  Receipt Date: 20120510
  Transmission Date: 20120825
  Serious: Yes (Other)
  Sender: FDA-Public Use
  Company Number: DSJ-2012-07903

PATIENT
  Age: 79 Year
  Sex: Male
  Weight: 69.6 kg

DRUGS (11)
  1. LENDORM [Concomitant]
  2. WARFARIN SODIUM [Concomitant]
  3. LANSOPRAZOLE [Concomitant]
  4. LASIX [Concomitant]
  5. MAGMITT (MAGNESIUM OXIDE) [Concomitant]
  6. OLMESARTAN MEDOXOMIL [Suspect]
     Indication: HYPERTENSION
     Dosage: 20 MG (20 MG, 1 IN 1 D), PER ORAL 10 MG (10 MG, 1 IN 1 D), PER ORAL
     Route: 048
     Dates: start: 20120310
  7. OLMESARTAN MEDOXOMIL [Suspect]
     Indication: HYPERTENSION
     Dosage: 20 MG (20 MG, 1 IN 1 D), PER ORAL 10 MG (10 MG, 1 IN 1 D), PER ORAL
     Route: 048
     Dates: start: 20120308, end: 20120309
  8. DORIBAX [Concomitant]
  9. LYRICA [Suspect]
     Indication: PHANTOM PAIN
     Dosage: 25 MG (25 MG, 1 IN 1 D), PER ORAL
     Route: 048
     Dates: start: 20120308, end: 20120309
  10. ASPIRIN [Concomitant]
  11. CELECOXIB [Concomitant]

REACTIONS (2)
  - OLIGURIA [None]
  - BLOOD PRESSURE DECREASED [None]
